FAERS Safety Report 9212028 (Version 1)
Quarter: 2013Q2

REPORT INFORMATION
  Report Type: Spontaneous
  Country: GR (occurrence: GR)
  Receive Date: 20130404
  Receipt Date: 20130404
  Transmission Date: 20140414
  Serious: Yes (Hospitalization)
  Sender: FDA-Public Use
  Company Number: GR-B.I. PHARMACEUTICALS,INC./RIDGEFIELD-2013-BI-07839GB

PATIENT
  Age: 65 Year
  Sex: Female

DRUGS (4)
  1. ATROVENT [Suspect]
     Indication: DYSPNOEA
     Dosage: 4 RT
     Route: 055
     Dates: start: 20130120
  2. ZOLOFT [Suspect]
     Indication: ANXIETY
     Dosage: 50 MG
     Route: 048
     Dates: start: 20130120
  3. PULMICORT [Suspect]
     Indication: DYSPNOEA
     Dosage: 2 RT
     Route: 055
     Dates: start: 20130120
  4. ATROST [Suspect]
     Indication: HYPERLIPIDAEMIA
     Route: 048

REACTIONS (9)
  - Dyspnoea [Not Recovered/Not Resolved]
  - Constipation [Not Recovered/Not Resolved]
  - Nasopharyngitis [Not Recovered/Not Resolved]
  - Dry mouth [Not Recovered/Not Resolved]
  - Yawning [Not Recovered/Not Resolved]
  - Alopecia [Not Recovered/Not Resolved]
  - Arthralgia [Not Recovered/Not Resolved]
  - Eye oedema [Not Recovered/Not Resolved]
  - Food interaction [Not Recovered/Not Resolved]
